FAERS Safety Report 24067692 (Version 1)
Quarter: 2024Q3

REPORT INFORMATION
  Report Type: Spontaneous
  Country: BR (occurrence: BR)
  Receive Date: 20240710
  Receipt Date: 20240710
  Transmission Date: 20241016
  Serious: Yes (Disabling, Other)
  Sender: RANBAXY
  Company Number: BR-SUN PHARMACEUTICAL INDUSTRIES LTD-2024R1-455759

PATIENT
  Age: 36 Year
  Sex: Female

DRUGS (2)
  1. CALCITRIOL [Suspect]
     Active Substance: CALCITRIOL
     Indication: Hypophosphataemic osteomalacia
     Dosage: UNK
     Route: 065
  2. UNSPECIFIED INGREDIENT [Suspect]
     Active Substance: UNSPECIFIED INGREDIENT
     Indication: Hypophosphataemic osteomalacia
     Dosage: UNK
     Route: 065

REACTIONS (4)
  - Treatment noncompliance [Unknown]
  - Therapeutic response decreased [Unknown]
  - Nephrolithiasis [Unknown]
  - Basal cell carcinoma [Unknown]
